FAERS Safety Report 5035609-8 (Version None)
Quarter: 2006Q2

REPORT INFORMATION
  Report Type: 
  Country: None (occurrence: None)
  Receive Date: 20060627
  Receipt Date: 20060621
  Transmission Date: 20061013
  Serious: Yes (Other)
  Sender: FDA-Public Use
  Company Number: US-GLAXOSMITHKLINE-A0610048A

PATIENT
  Age: 78 Year
  Sex: Male

DRUGS (2)
  1. COREG [Suspect]
     Dosage: 12.5 PER DAY
     Route: 048
  2. UNSPECIFIED MEDICATIONS [Concomitant]

REACTIONS (1)
  - CUTANEOUS VASCULITIS [None]
